FAERS Safety Report 5898668-6 (Version None)
Quarter: 2008Q3

REPORT INFORMATION
  Report Type: 
  Country: None (occurrence: None)
  Receive Date: 20080925
  Receipt Date: 20080327
  Transmission Date: 20090109
  Serious: No
  Sender: FDA-Public Use
  Company Number: A0717860A

PATIENT
  Age: 52 Year
  Sex: Female

DRUGS (5)
  1. WELLBUTRIN XL [Suspect]
     Indication: MENOPAUSAL DEPRESSION
     Dosage: 1TAB PER DAY
     Route: 048
     Dates: start: 20040101
  2. SYNTHROID [Concomitant]
  3. ESTRATEST [Concomitant]
  4. ACYCLOVIR [Concomitant]
  5. PRILOSEC [Concomitant]

REACTIONS (4)
  - DRUG INEFFECTIVE [None]
  - FEELING ABNORMAL [None]
  - IRRITABILITY [None]
  - PERSONALITY DISORDER [None]
